FAERS Safety Report 9302306 (Version 3)
Quarter: 2014Q2

REPORT INFORMATION
  Report Type: Report from Study
  Country: CA (occurrence: CA)
  Receive Date: 20130522
  Receipt Date: 20140401
  Transmission Date: 20141212
  Serious: Yes (Other)
  Sender: FDA-Public Use
  Company Number: CA-ROCHE-1225127

PATIENT
  Age: 76 Year
  Sex: Female
  Weight: 77.18 kg

DRUGS (18)
  1. TOCILIZUMAB [Suspect]
     Indication: RHEUMATOID ARTHRITIS
     Dosage: LAST DOSE PRIOR TO ADVERSE EVENT: 05/APR/2013 (680 MG)?360 MG TOTAL MONTHLY DOSE
     Route: 042
     Dates: start: 20121207
  2. TOCILIZUMAB [Suspect]
     Route: 042
     Dates: start: 20130104
  3. TOCILIZUMAB [Suspect]
     Route: 042
     Dates: start: 20130201
  4. TOCILIZUMAB [Suspect]
     Route: 042
     Dates: start: 20130201, end: 20130429
  5. HYDROCHLOROTHIAZIDE [Concomitant]
     Dosage: DAILY
     Route: 065
     Dates: start: 1994
  6. ACTONEL [Concomitant]
     Dosage: DAILY
     Route: 065
  7. TEGRETOL [Concomitant]
     Dosage: DAILY
     Route: 065
     Dates: start: 1994
  8. NIFEDIPINE [Concomitant]
     Dosage: DAILY
     Route: 065
     Dates: start: 1993
  9. LOSARTAN [Concomitant]
     Dosage: DAILY
     Route: 065
     Dates: start: 199312
  10. PANTOPRAZOLE [Concomitant]
     Dosage: DAILY
     Route: 065
     Dates: start: 200312
  11. CITALOPRAM [Concomitant]
     Dosage: DAILY
     Route: 065
  12. ACETYLSALICYLIC ACID [Concomitant]
     Dosage: DAILY
     Route: 065
     Dates: start: 1994
  13. PREDNISONE [Concomitant]
     Route: 065
     Dates: start: 2013
  14. PREDNISONE [Concomitant]
     Route: 065
  15. PREDNISONE [Concomitant]
     Route: 065
  16. PREDNISONE [Concomitant]
     Dosage: DAILY
     Route: 048
  17. RABEPRAZOLE [Concomitant]
     Route: 065
  18. SIMVASTATIN [Concomitant]
     Route: 065

REACTIONS (1)
  - Hypersensitivity vasculitis [Recovered/Resolved]
